FAERS Safety Report 8122828-7 (Version None)
Quarter: 2012Q1

REPORT INFORMATION
  Report Type: 
  Country: None (occurrence: None)
  Receive Date: 20120208
  Receipt Date: 20120131
  Transmission Date: 20120608
  Serious: Yes (Other)
  Sender: FDA-Public Use
  Company Number: VE-PFIZER INC-2012030055

PATIENT
  Age: 35 Year
  Sex: Female

DRUGS (2)
  1. ASPIRIN [Concomitant]
     Indication: PROPHYLAXIS
     Dosage: 81 MG, 1X/DAY
     Route: 048
  2. ZOLOFT [Suspect]
     Indication: SALIVARY HYPERSECRETION
     Dosage: 50 MG, 1X/DAY
     Route: 048

REACTIONS (1)
  - CAESAREAN SECTION [None]
